FAERS Safety Report 15230344 (Version 2)
Quarter: 2018Q3

REPORT INFORMATION
  Report Type: Other
  Country: DE (occurrence: DE)
  Receive Date: 20180802
  Receipt Date: 20180822
  Transmission Date: 20181010
  Serious: Yes (Hospitalization, Other)
  Sender: FDA-Public Use
  Company Number: DE-MACLEODS PHARMACEUTICALS US LTD-MAC2018015740

PATIENT

DRUGS (22)
  1. OLANZAPINE. [Suspect]
     Active Substance: OLANZAPINE
     Dosage: 30 MILLIGRAM, QD
     Route: 048
     Dates: start: 20170815, end: 20170910
  2. CLOZAPIN [Suspect]
     Active Substance: CLOZAPINE
     Indication: PRODUCT USED FOR UNKNOWN INDICATION
     Dosage: 25 MILLIGRAM, QD
     Route: 048
     Dates: start: 20170906, end: 20170907
  3. CLOZAPIN [Suspect]
     Active Substance: CLOZAPINE
     Dosage: 100 MILLIGRAM, QD
     Route: 048
     Dates: start: 20170909
  4. CLOZAPIN [Suspect]
     Active Substance: CLOZAPINE
     Dosage: 50 MILLIGRAM, QD
     Route: 048
     Dates: start: 20170908
  5. ZUCLOPENTHIXOL [Suspect]
     Active Substance: ZUCLOPENTHIXOL
     Dosage: 150 MILLIGRAM, QD
     Route: 048
     Dates: start: 20170821
  6. AKINETON [Concomitant]
     Active Substance: BIPERIDEN HYDROCHLORIDE
     Indication: PRODUCT USED FOR UNKNOWN INDICATION
     Dosage: 4 MILLIGRAM, QD
     Route: 048
     Dates: start: 20170808, end: 20170910
  7. CLOZAPIN [Suspect]
     Active Substance: CLOZAPINE
     Dosage: 150 MILLIGRAM, QD
     Route: 048
     Dates: start: 20170910
  8. ZUCLOPENTHIXOL [Suspect]
     Active Substance: ZUCLOPENTHIXOL
     Indication: PRODUCT USED FOR UNKNOWN INDICATION
     Dosage: 200 MILLIGRAM, QD
     Route: 048
     Dates: start: 20170822, end: 20170910
  9. LITHIUM CARBONATE. [Concomitant]
     Active Substance: LITHIUM CARBONATE
     Indication: PRODUCT USED FOR UNKNOWN INDICATION
     Dosage: 900 MILLIGRAM, QD
     Route: 048
     Dates: start: 20170830, end: 20170905
  10. OLANZAPINE. [Suspect]
     Active Substance: OLANZAPINE
     Indication: PRODUCT USED FOR UNKNOWN INDICATION
     Dosage: 10 MILLIGRAM, QD
     Route: 048
     Dates: start: 20170810, end: 20170811
  11. ARIPIPRAZOLE  30 MG [Suspect]
     Active Substance: ARIPIPRAZOLE
     Indication: PRODUCT USED FOR UNKNOWN INDICATION
     Dosage: 30 MILLIGRAM, QD, OM, FOR WEEKS
     Route: 048
     Dates: end: 20170910
  12. DIAZEPAM. [Suspect]
     Active Substance: DIAZEPAM
     Indication: PRODUCT USED FOR UNKNOWN INDICATION
     Dosage: 20 MILLIGRAM, QD
     Route: 048
     Dates: start: 20170803, end: 20170803
  13. CLEXANE [Concomitant]
     Active Substance: ENOXAPARIN SODIUM
     Indication: ANTICOAGULANT THERAPY
     Dosage: 0.6 INTERNATIONAL UNIT, QD
     Route: 058
     Dates: start: 20170809
  14. LITHIUM CARBONATE. [Concomitant]
     Active Substance: LITHIUM CARBONATE
     Dosage: 450 MILLIGRAM, QD
     Route: 048
     Dates: start: 20170829
  15. DIAZEPAM. [Suspect]
     Active Substance: DIAZEPAM
     Dosage: 40 MILLIGRAM, QD
     Route: 048
     Dates: start: 20170804, end: 20170825
  16. DIAZEPAM. [Suspect]
     Active Substance: DIAZEPAM
     Dosage: 55 MILLIGRAM, QD
     Route: 048
     Dates: start: 20170906
  17. DIAZEPAM. [Suspect]
     Active Substance: DIAZEPAM
     Dosage: 60 MILLIGRAM, QD
     Route: 048
     Dates: start: 20170907, end: 20170909
  18. OLANZAPINE. [Suspect]
     Active Substance: OLANZAPINE
     Dosage: 20 MILLIGRAM, QD
     Route: 048
     Dates: start: 20170812, end: 20170814
  19. DIAZEPAM. [Suspect]
     Active Substance: DIAZEPAM
     Dosage: 50 MILLIGRAM, QD
     Route: 048
     Dates: start: 20170826, end: 20170905
  20. HALOPERIDOL. [Concomitant]
     Active Substance: HALOPERIDOL
     Indication: PRODUCT USED FOR UNKNOWN INDICATION
     Dosage: 3 MILLIGRAM, QD
     Route: 065
  21. DIAZEPAM. [Suspect]
     Active Substance: DIAZEPAM
     Dosage: 40 MILLIGRAM, QD
     Route: 048
     Dates: start: 20170910
  22. LITHIUM CARBONATE. [Concomitant]
     Active Substance: LITHIUM CARBONATE
     Dosage: 1350 MILLIGRAM, QD
     Route: 048
     Dates: start: 20170906, end: 20170910

REACTIONS (5)
  - Acute respiratory failure [Recovered/Resolved]
  - Respiratory failure [Recovered/Resolved]
  - Pneumonia aspiration [Recovered/Resolved]
  - Salivary hypersecretion [Recovered/Resolved]
  - Dysphagia [Recovered/Resolved]

NARRATIVE: CASE EVENT DATE: 20170909
